FAERS Safety Report 8801548 (Version 3)
Quarter: 2014Q1

REPORT INFORMATION
  Report Type: Spontaneous
  Country: GB (occurrence: GB)
  Receive Date: 20120921
  Receipt Date: 20140305
  Transmission Date: 20141002
  Serious: Yes (Hospitalization)
  Sender: FDA-Public Use
  Company Number: GB-JNJFOC-20120904767

PATIENT
  Age: 47 Year
  Sex: Female

DRUGS (6)
  1. SIMPONI [Suspect]
     Indication: ANKYLOSING SPONDYLITIS
     Route: 058
     Dates: start: 20120601
  2. TRAMADOL [Concomitant]
     Indication: PAIN
     Route: 065
     Dates: start: 201205
  3. ARCOXIA [Concomitant]
     Indication: PAIN
     Dosage: STARTED PRIOR TO 2009
     Route: 065
  4. NIFEDIPINE [Concomitant]
     Indication: HYPERTENSION
     Route: 065
     Dates: start: 201205
  5. FLUOXETIN [Concomitant]
     Indication: DEPRESSION
     Dosage: STARTED PRIOR TO 2009
     Route: 065
  6. MEBEVERINE [Concomitant]
     Indication: IRRITABLE BOWEL SYNDROME
     Dosage: STARTED PRIOR TO 2009
     Route: 065

REACTIONS (2)
  - Periorbital oedema [Recovered/Resolved]
  - Parotitis [Recovering/Resolving]
